FAERS Safety Report 9741962 (Version 9)
Quarter: 2014Q2

REPORT INFORMATION
  Report Type: Spontaneous
  Country: US (occurrence: US)
  Receive Date: 20131210
  Receipt Date: 20140521
  Transmission Date: 20141212
  Serious: Yes (Other)
  Sender: FDA-Public Use
  Company Number: US-PFIZER INC-2013349075

PATIENT
  Age: 59 Year
  Sex: Male

DRUGS (14)
  1. SUTENT [Suspect]
     Indication: RENAL CELL CARCINOMA
     Dosage: 50 MG, CYCLIC (DAILY)
     Dates: start: 20131001, end: 20140206
  2. SUTENT [Suspect]
     Dosage: 50 MG, CYCLIC (DAILY)
     Dates: start: 20140220
  3. SUTENT [Suspect]
     Dosage: 50 MG, CYCLIC (DAILY 28 DAYS ON AND 14 DAYS OFF)
  4. ARICEPT [Concomitant]
     Dosage: UNK
  5. NAMENDA [Concomitant]
     Dosage: UNK
  6. METOPROLOL [Concomitant]
     Dosage: UNK
  7. SIMVASTATIN [Concomitant]
     Dosage: UNK
  8. AMLODIPINE [Concomitant]
     Dosage: UNK
  9. VITAMIN E [Concomitant]
     Dosage: UNK
  10. GLUCOSAMINE [Concomitant]
     Dosage: UNK
  11. ASPIRIN [Concomitant]
     Dosage: UNK
  12. PROZAC [Concomitant]
     Dosage: UNK
  13. NYSTATIN [Concomitant]
     Dosage: UNK
  14. VITAMIN B [Concomitant]
     Dosage: UNK

REACTIONS (17)
  - Rib fracture [Unknown]
  - Oral pain [Recovering/Resolving]
  - Oral mucosal erythema [Recovering/Resolving]
  - Palmar-plantar erythrodysaesthesia syndrome [Unknown]
  - Decreased appetite [Unknown]
  - Epistaxis [Unknown]
  - Yellow skin [Unknown]
  - Dry mouth [Recovering/Resolving]
  - Pain in extremity [Recovering/Resolving]
  - Erythema [Unknown]
  - Blister [Unknown]
  - Skin exfoliation [Unknown]
  - Dysphagia [Recovering/Resolving]
  - Glossodynia [Recovering/Resolving]
  - Hair colour changes [Unknown]
  - Disease progression [Unknown]
  - Renal cell carcinoma [Unknown]
